FAERS Safety Report 12174178 (Version 1)
Quarter: 2016Q1

REPORT INFORMATION
  Report Type: Spontaneous
  Country: FR (occurrence: FR)
  Receive Date: 20160314
  Receipt Date: 20160314
  Transmission Date: 20160526
  Serious: Yes (Death, Life-Threatening, Hospitalization, Other)
  Sender: FDA-Public Use
  Company Number: FR-HOSPIRA-3197931

PATIENT
  Age: 87 Year
  Sex: Male

DRUGS (2)
  1. CARBOPLATIN HOSPIRA [Suspect]
     Active Substance: CARBOPLATIN
     Indication: CHEMOTHERAPY
     Dosage: AUC 6 AT D1
     Route: 041
     Dates: start: 20141203, end: 20150206
  2. PACLITAXEL KABI [Suspect]
     Active Substance: PACLITAXEL
     Indication: CHEMOTHERAPY
     Dosage: D1 AND D8
     Route: 041
     Dates: start: 20141203, end: 20150206

REACTIONS (11)
  - Thrombocytopenia [Fatal]
  - Hypotension [Unknown]
  - Cardiopulmonary failure [Unknown]
  - Pyrexia [Unknown]
  - Anaemia [Fatal]
  - Gastrointestinal haemorrhage [Fatal]
  - Duodenal ulcer [Fatal]
  - Oxygen saturation decreased [Unknown]
  - Haemoptysis [Fatal]
  - Dyspnoea [Unknown]
  - Melaena [Fatal]

NARRATIVE: CASE EVENT DATE: 20150210
